FAERS Safety Report 14836767 (Version 1)
Quarter: 2018Q2

REPORT INFORMATION
  Report Type: Spontaneous
  Country: US (occurrence: US)
  Receive Date: 20180416
  Receipt Date: 20180416
  Transmission Date: 20180711
  Serious: Yes (Life-Threatening)
  Sender: FDA-Public Use
  Company Number: None

PATIENT
  Age: 82 Year
  Sex: Female

DRUGS (1)
  1. DILAUDID [Suspect]
     Active Substance: HYDROMORPHONE HYDROCHLORIDE
     Indication: PAIN
     Dosage: ?          OTHER FREQUENCY:STAT;?
     Route: 042
     Dates: start: 20180415, end: 20180415

REACTIONS (1)
  - Respiratory rate decreased [None]

NARRATIVE: CASE EVENT DATE: 20180415
